FAERS Safety Report 7878346-4 (Version None)
Quarter: 2011Q4

REPORT INFORMATION
  Report Type: 
  Country: None (occurrence: None)
  Receive Date: 20111101
  Receipt Date: 20111019
  Transmission Date: 20120403
  Serious: Yes (Other)
  Sender: FDA-Public Use
  Company Number: GB-RANBAXY-2011R1-49799

PATIENT
  Age: 60 Year
  Sex: Female

DRUGS (2)
  1. METFORMIN HCL [Concomitant]
     Indication: PRODUCT USED FOR UNKNOWN INDICATION
     Route: 065
  2. AMOXICILLIN [Suspect]
     Indication: TOOTH DISORDER
     Dosage: 500 MG, QD
     Route: 065

REACTIONS (5)
  - RASH [None]
  - PARAESTHESIA ORAL [None]
  - ANAPHYLACTIC SHOCK [None]
  - DYSPNOEA [None]
  - PRURITUS GENERALISED [None]
